FAERS Safety Report 6906364-9 (Version None)
Quarter: 2010Q3

REPORT INFORMATION
  Report Type: 
  Country: None (occurrence: None)
  Receive Date: 20100804
  Receipt Date: 20100727
  Transmission Date: 20110219
  Serious: Yes (Hospitalization)
  Sender: FDA-Public Use
  Company Number: A0867110A

PATIENT
  Age: 71 Year
  Sex: Male
  Weight: 90.5 kg

DRUGS (6)
  1. AVANDIA [Suspect]
  2. AGGRENOX [Concomitant]
  3. GLYBURIDE [Concomitant]
  4. METFORMIN HCL [Concomitant]
  5. ZOCOR [Concomitant]
  6. LISINOPRIL [Concomitant]

REACTIONS (2)
  - CEREBROVASCULAR ACCIDENT [None]
  - CORONARY ARTERY DISEASE [None]
